FAERS Safety Report 4664588-8 (Version None)
Quarter: 2005Q2

REPORT INFORMATION
  Report Type: 
  Country: None (occurrence: None)
  Receive Date: 20050518
  Receipt Date: 20050510
  Transmission Date: 20051028
  Serious: Yes (Other)
  Sender: FDA-Public Use
  Company Number: FR-GLAXOSMITHKLINE-B0380740A

PATIENT
  Age: 50 Year
  Sex: Male

DRUGS (2)
  1. ZYBAN [Suspect]
     Indication: SMOKING CESSATION THERAPY
     Dosage: 300MG PER DAY
     Route: 048
     Dates: start: 20041001
  2. IMIJECT [Suspect]
     Indication: ANGIOPATHY
     Dosage: 4INJ PER DAY
     Route: 058

REACTIONS (3)
  - ANALGESIC EFFECT [None]
  - DRUG ABUSER [None]
  - THERAPEUTIC RESPONSE UNEXPECTED [None]
